FAERS Safety Report 12808883 (Version 1)
Quarter: 2016Q4

REPORT INFORMATION
  Report Type: Spontaneous
  Country: IT (occurrence: IT)
  Receive Date: 20161004
  Receipt Date: 20161004
  Transmission Date: 20170207
  Serious: Yes (Other)
  Sender: FDA-Public Use
  Company Number: PHHY2016IT134470

PATIENT
  Age: 54 Year
  Sex: Female

DRUGS (6)
  1. VOLTAREN [Interacting]
     Active Substance: DICLOFENAC SODIUM
     Indication: PERIARTHRITIS
  2. OKI [Interacting]
     Active Substance: KETOPROFEN LYSINE
     Indication: PERIARTHRITIS CALCAREA
     Dosage: 1 DF, TOTAL
     Route: 048
     Dates: start: 20160828, end: 20160828
  3. PROPRANOLOL [Concomitant]
     Active Substance: PROPRANOLOL\PROPRANOLOL HYDROCHLORIDE
     Indication: PRODUCT USED FOR UNKNOWN INDICATION
     Dosage: UNK
     Route: 065
  4. BENTELAN [Concomitant]
     Active Substance: BETAMETHASONE SODIUM PHOSPHATE
     Indication: PRODUCT USED FOR UNKNOWN INDICATION
     Dosage: UNK
     Route: 065
  5. VOLTAREN [Suspect]
     Active Substance: DICLOFENAC SODIUM
     Indication: PERIARTHRITIS CALCAREA
     Dosage: 50 MG, TOTAL
     Route: 048
     Dates: start: 20160828, end: 20160828
  6. EUTIROX [Interacting]
     Active Substance: LEVOTHYROXINE SODIUM
     Indication: THYROIDECTOMY
     Dosage: 125 UG, UNK
     Route: 048

REACTIONS (7)
  - Asthenia [Unknown]
  - Dry mouth [Unknown]
  - Hyperthyroidism [Recovered/Resolved]
  - Increased appetite [Unknown]
  - Palpitations [Recovered/Resolved]
  - Dyspnoea [Unknown]
  - Hyperventilation [Unknown]

NARRATIVE: CASE EVENT DATE: 20160828
